FAERS Safety Report 7106116-3 (Version None)
Quarter: 2010Q4

REPORT INFORMATION
  Report Type: 
  Country: None (occurrence: None)
  Receive Date: 20101116
  Receipt Date: 20101105
  Transmission Date: 20110411
  Serious: Yes (Other)
  Sender: FDA-Public Use
  Company Number: US-BAXTER-2010BH027537

PATIENT
  Age: 52 Year
  Sex: Female

DRUGS (1)
  1. SUPRANE [Suspect]
     Indication: SPINAL FUSION SURGERY
     Route: 055
     Dates: start: 20101101

REACTIONS (2)
  - COUGH [None]
  - TYMPANIC MEMBRANE PERFORATION [None]
